FAERS Safety Report 9450550 (Version 2)
Quarter: 2013Q4

REPORT INFORMATION
  Report Type: Spontaneous
  Country: US (occurrence: US)
  Receive Date: 20130809
  Receipt Date: 20131023
  Transmission Date: 20140711
  Serious: Yes (Death)
  Sender: FDA-Public Use
  Company Number: US-GLAXOSMITHKLINE-A1024197A

PATIENT
  Age: 81 Year
  Sex: Female

DRUGS (1)
  1. PROMACTA [Suspect]
     Indication: IMMUNE THROMBOCYTOPENIC PURPURA
     Dosage: 25MG PER DAY
     Route: 065

REACTIONS (7)
  - Post procedural haemorrhage [Fatal]
  - Platelet count decreased [Fatal]
  - Wrist fracture [Unknown]
  - Wrist fracture [Unknown]
  - Upper respiratory tract infection [Recovered/Resolved]
  - Chest pain [Recovered/Resolved]
  - Pyrexia [Recovered/Resolved]
